FAERS Safety Report 8981866 (Version 1)
Quarter: 2012Q4

REPORT INFORMATION
  Report Type: 
  Country: US (occurrence: US)
  Receive Date: 20121223
  Receipt Date: 20121223
  Transmission Date: 20130627
  Serious: Yes (Other)
  Sender: FDA-Public Use
  Company Number: PHEH2012US024991

PATIENT
  Sex: Female

DRUGS (1)
  1. EXFORGE [Suspect]
     Dosage: 1 DF(160/5 mg), daily
     Route: 048

REACTIONS (6)
  - Diabetes mellitus [Unknown]
  - Basedow^s disease [Unknown]
  - Thyroid disorder [Unknown]
  - Renal disorder [Unknown]
  - Neuropathy peripheral [Unknown]
  - Blood cholesterol increased [Unknown]
